FAERS Safety Report 7672979-6 (Version None)
Quarter: 2011Q3

REPORT INFORMATION
  Report Type: 
  Country: None (occurrence: None)
  Receive Date: 20110809
  Receipt Date: 20110805
  Transmission Date: 20111222
  Serious: Yes (Death, Hospitalization)
  Sender: FDA-Public Use
  Company Number: AU-AMGEN-AUSSP2011039903

PATIENT
  Age: 52 Year
  Sex: Male

DRUGS (6)
  1. DOXORUBICIN HCL [Concomitant]
  2. PREDNISONE [Concomitant]
  3. NEULASTA [Suspect]
     Indication: CHEMOTHERAPY
  4. CYCLOPHOSPHAMIDE [Concomitant]
  5. RITUXIMAB [Concomitant]
  6. VINCRISTINE [Concomitant]

REACTIONS (1)
  - SEPSIS [None]
